FAERS Safety Report 8000217-3 (Version None)
Quarter: 2011Q4

REPORT INFORMATION
  Report Type: 
  Country: None (occurrence: None)
  Receive Date: 20111123
  Receipt Date: 20110922
  Transmission Date: 20120403
  Serious: Yes (Other)
  Sender: FDA-Public Use
  Company Number: 336081

PATIENT
  Age: 53 Year
  Sex: Female
  Weight: 95.2 kg

DRUGS (1)
  1. VICTOZA [Suspect]
     Indication: WEIGHT CONTROL
     Dates: start: 20100101, end: 20110101

REACTIONS (6)
  - ANGIOEDEMA [None]
  - PRURITUS [None]
  - URTICARIA [None]
  - PAIN [None]
  - RASH [None]
  - INJECTION SITE RASH [None]
